FAERS Safety Report 20736606 (Version 1)
Quarter: 2022Q2

REPORT INFORMATION
  Report Type: Spontaneous
  Country: US (occurrence: US)
  Receive Date: 20220421
  Receipt Date: 20220421
  Transmission Date: 20220721
  Serious: No
  Sender: FDA-Public Use
  Company Number: US-PFIZER INC-202200598801

PATIENT
  Age: 62 Year
  Sex: Female
  Weight: 83.46 kg

DRUGS (2)
  1. GABAPENTIN [Suspect]
     Active Substance: GABAPENTIN
     Indication: Pain
     Dosage: 600 MG, 3X/DAY
  2. ASPIRIN [Concomitant]
     Active Substance: ASPIRIN

REACTIONS (4)
  - Off label use [Unknown]
  - Neck mass [Unknown]
  - Headache [Recovered/Resolved]
  - Pain [Recovered/Resolved]

NARRATIVE: CASE EVENT DATE: 20220418
